FAERS Safety Report 7932786-3 (Version None)
Quarter: 2011Q4

REPORT INFORMATION
  Report Type: 
  Country: None (occurrence: None)
  Receive Date: 20111122
  Receipt Date: 20111111
  Transmission Date: 20120403
  Serious: Yes (Hospitalization)
  Sender: FDA-Public Use
  Company Number: IT-BRISTOL-MYERS SQUIBB COMPANY-16231466

PATIENT
  Age: 74 Year
  Sex: Female

DRUGS (5)
  1. COUMADIN [Suspect]
     Route: 048
     Dates: start: 19900101
  2. LANOXIN [Concomitant]
     Dosage: 1DF:0.125 UNITS NOS
  3. LEVOTHYROXINE SODIUM [Concomitant]
  4. FEMARA [Concomitant]
  5. FUROSEMIDE [Concomitant]

REACTIONS (3)
  - ANAEMIA [None]
  - ABDOMINAL PAIN [None]
  - HAEMATOMA [None]
